FAERS Safety Report 9653455 (Version 1)
Quarter: 2013Q4

REPORT INFORMATION
  Report Type: Spontaneous
  Country: US (occurrence: None)
  Receive Date: 20131028
  Receipt Date: 20131028
  Transmission Date: 20140711
  Serious: Yes (Other)
  Sender: FDA-Public Use
  Company Number: None

PATIENT
  Age: 34 Year
  Sex: Female
  Weight: 104.33 kg

DRUGS (2)
  1. ZITHROMAX [Suspect]
     Indication: EAR INFECTION
     Dosage: TAKE 2 TABS FIRST DAY ONCE DAILY
     Route: 048
     Dates: start: 20131014, end: 20131017
  2. ZITHROMAX [Suspect]
     Indication: SINUSITIS
     Dosage: TAKE 2 TABS FIRST DAY ONCE DAILY
     Route: 048
     Dates: start: 20131014, end: 20131017

REACTIONS (2)
  - Memory impairment [None]
  - Mental status changes [None]
